FAERS Safety Report 10768593 (Version 1)
Quarter: 2015Q1

REPORT INFORMATION
  Report Type: Spontaneous
  Country: US (occurrence: None)
  Receive Date: 20150204
  Receipt Date: 20150204
  Transmission Date: 20150721
  Serious: Yes (Hospitalization, Other)
  Sender: FDA-Public Use
  Company Number: US-ZYDUS-006462

PATIENT
  Age: 47 Year
  Sex: Male

DRUGS (1)
  1. AZATHIOPRINE (AZATHIOPRINE) [Suspect]
     Active Substance: AZATHIOPRINE
     Indication: MYASTHENIA GRAVIS
     Dosage: 1.0DAYS
     Route: 048

REACTIONS (4)
  - Toxicity to various agents [None]
  - Hepatitis [None]
  - Cholestasis [None]
  - Drug-induced liver injury [None]
